FAERS Safety Report 8618758-4 (Version None)
Quarter: 2012Q3

REPORT INFORMATION
  Report Type: 
  Country: None (occurrence: None)
  Receive Date: 20120816
  Receipt Date: 20120816
  Transmission Date: 20120928
  Serious: Yes (Other)
  Sender: FDA-Public Use
  Company Number: None

PATIENT
  Age: 58 Year
  Sex: Female
  Weight: 86.1834 kg

DRUGS (1)
  1. ESCITALOPRAM [Suspect]

REACTIONS (7)
  - SUICIDAL IDEATION [None]
  - POLYDIPSIA [None]
  - PRODUCT SUBSTITUTION ISSUE [None]
  - MEMORY IMPAIRMENT [None]
  - HYPERSOMNIA [None]
  - EMOTIONAL DISORDER [None]
  - IMPAIRED WORK ABILITY [None]
